FAERS Safety Report 8447911-8 (Version None)
Quarter: 2012Q2

REPORT INFORMATION
  Report Type: 
  Country: None (occurrence: None)
  Receive Date: 20120619
  Receipt Date: 20120612
  Transmission Date: 20120825
  Serious: Yes (Death, Life-Threatening, Hospitalization, Other)
  Sender: FDA-Public Use
  Company Number: PHHO2010ZA15744

PATIENT
  Sex: Female
  Weight: 52 kg

DRUGS (7)
  1. MAXOLON [Concomitant]
     Indication: NAUSEA
     Dosage: UNK
     Dates: start: 20100823
  2. COMPARATOR TRASTUZUMAB [Suspect]
     Indication: BREAST CANCER METASTATIC
     Dosage: 2 MG/KG, QW
     Dates: start: 20100810, end: 20101004
  3. PACLITAXEL [Suspect]
     Indication: BREAST CANCER METASTATIC
     Dosage: 80 MG/M2, QW
     Dates: start: 20100810, end: 20101004
  4. MARINOL [Concomitant]
     Indication: NAUSEA
  5. AFINITOR [Suspect]
     Indication: BREAST CANCER METASTATIC
     Dosage: UNK
     Route: 048
     Dates: start: 20100810, end: 20101004
  6. ZAMANON [Concomitant]
     Indication: NAUSEA
     Dosage: UNK
     Dates: start: 20100928
  7. METFORMIN HCL [Concomitant]
     Indication: HYPERGLYCAEMIA
     Dosage: UNK
     Dates: start: 20100915

REACTIONS (13)
  - SEPSIS [None]
  - DIABETIC ULCER [None]
  - DEHYDRATION [None]
  - PNEUMONITIS [None]
  - NEOPLASM MALIGNANT [None]
  - FATIGUE [None]
  - CARDIAC ARREST [None]
  - NEOPLASM PROGRESSION [None]
  - HYPOKALAEMIA [None]
  - SKIN LESION [None]
  - HYPONATRAEMIA [None]
  - HYPERGLYCAEMIA [None]
  - RENAL IMPAIRMENT [None]
